FAERS Safety Report 9751886 (Version 1)
Quarter: 2013Q4

REPORT INFORMATION
  Report Type: Report from Study
  Country: CN (occurrence: CN)
  Receive Date: 20131213
  Receipt Date: 20131213
  Transmission Date: 20140711
  Serious: Yes (Death, Other)
  Sender: FDA-Public Use
  Company Number: CN-BRISTOL-MYERS SQUIBB COMPANY-19904184

PATIENT
  Age: 49 Year
  Sex: Female

DRUGS (5)
  1. ERBITUX SOLN FOR INF [Suspect]
     Indication: COLON CANCER METASTATIC
     Route: 041
     Dates: start: 2011, end: 2013
  2. 5-FLUOROURACIL [Suspect]
     Indication: COLON CANCER METASTATIC
     Dates: start: 2011
  3. FOLINIC ACID [Suspect]
     Indication: COLON CANCER METASTATIC
     Dates: start: 2011
  4. IRINOTECAN [Suspect]
     Indication: COLON CANCER METASTATIC
     Dates: start: 2011
  5. BEVACIZUMAB [Suspect]
     Indication: COLON CANCER METASTATIC

REACTIONS (13)
  - Multi-organ failure [Fatal]
  - Urinary tract infection [Unknown]
  - Lung infection [Unknown]
  - Coma [Unknown]
  - Oophorectomy bilateral [Unknown]
  - Colon operation [Unknown]
  - Spinal decompression [Unknown]
  - Hyperpyrexia [Unknown]
  - Quadriparesis [Unknown]
  - Uterine cervical lesion excision [Unknown]
  - Sensorimotor disorder [Unknown]
  - Abdominal distension [Recovered/Resolved]
  - Abdominal pain [Recovered/Resolved]
